FAERS Safety Report 23762713 (Version 2)
Quarter: 2024Q2

REPORT INFORMATION
  Report Type: Spontaneous
  Country: US (occurrence: US)
  Receive Date: 20240419
  Receipt Date: 20240619
  Transmission Date: 20240716
  Serious: Yes (Other)
  Sender: FDA-Public Use
  Company Number: US-FreseniusKabi-FK202406068

PATIENT
  Age: 16 Year
  Sex: Male
  Weight: 59.4 kg

DRUGS (2)
  1. DIPRIVAN [Suspect]
     Active Substance: ISOPROPYL ALCOHOL\PROPOFOL
     Indication: Sedation
     Dosage: FORM OF ADMIN: INJECTABLE EMULSION?DIPRIVAN 500 MG PR 50 ML VIALS?10 MG/ML IV CONTINUOUS INFUSION: 1
     Dates: start: 20240401
  2. DIPRIVAN [Suspect]
     Active Substance: ISOPROPYL ALCOHOL\PROPOFOL
     Dosage: FORM OF ADMIN: INJECTABLE EMULSION?DIPRIVAN 500 MG PR 50 ML VIALS?IV BOLUS: 50 MG AT 0905; 40 MG AT
     Dates: start: 20240401

REACTIONS (9)
  - Airway complication of anaesthesia [Recovered/Resolved]
  - Cough [Recovered/Resolved]
  - Bronchospasm [Recovered/Resolved]
  - Oxygen saturation decreased [Recovered/Resolved]
  - Use of accessory respiratory muscles [Recovered/Resolved]
  - Laryngospasm [Recovered/Resolved]
  - Contraindicated product administered [Recovered/Resolved]
  - Retching [Recovered/Resolved]
  - Therapeutic product effect decreased [Recovered/Resolved]

NARRATIVE: CASE EVENT DATE: 20240401
